FAERS Safety Report 4445227-8 (Version None)
Quarter: 2004Q3

REPORT INFORMATION
  Report Type: 
  Country: None (occurrence: None)
  Receive Date: 20040819
  Receipt Date: 20040527
  Transmission Date: 20050211
  Serious: Yes (Hospitalization, Other)
  Sender: FDA-Public Use
  Company Number: 2004021359

PATIENT
  Sex: Female

DRUGS (3)
  1. NORVASC [Suspect]
     Indication: ILL-DEFINED DISORDER
  2. RAMIPRIL [Concomitant]
  3. METOPROLOL SUCCINATE [Concomitant]

REACTIONS (1)
  - ATRIAL FIBRILLATION [None]
